FAERS Safety Report 8329307-2 (Version None)
Quarter: 2012Q2

REPORT INFORMATION
  Report Type: 
  Country: None (occurrence: None)
  Receive Date: 20120502
  Receipt Date: 20110520
  Transmission Date: 20120825
  Serious: No
  Sender: FDA-Public Use
  Company Number: US-ASTRAZENECA-2011SE31529

PATIENT
  Age: 52 Year
  Sex: Female

DRUGS (6)
  1. ALDACTONE [Concomitant]
  2. COUMADIN [Concomitant]
  3. COREG [Concomitant]
  4. CALCIUM WITH VITAMIN D [Concomitant]
  5. LISINOPRIL [Concomitant]
  6. FASLODEX [Suspect]
     Indication: BREAST CANCER STAGE IV
     Route: 030
     Dates: start: 20110401

REACTIONS (3)
  - TONGUE DISCOLOURATION [None]
  - INJECTION SITE REACTION [None]
  - PARAESTHESIA ORAL [None]
